FAERS Safety Report 8303676-1 (Version None)
Quarter: 2012Q2

REPORT INFORMATION
  Report Type: 
  Country: None (occurrence: None)
  Receive Date: 20120423
  Receipt Date: 20120402
  Transmission Date: 20120825
  Serious: Yes (Hospitalization, Other)
  Sender: FDA-Public Use
  Company Number: US-PFIZER INC-US-WYE-H17496110

PATIENT
  Sex: Female
  Weight: 69.4 kg

DRUGS (18)
  1. BAPINEUZUMAB [Suspect]
     Dosage: UNK MG/KG, SINGLE
     Route: 042
     Dates: start: 20100610, end: 20100610
  2. AMITRIPTYLINE [Concomitant]
     Dosage: 50 MG, 1X/DAY
     Route: 048
  3. MEDROL [Suspect]
     Indication: ANTIALLERGIC THERAPY
  4. MEDROL [Suspect]
     Indication: ANTIINFLAMMATORY THERAPY
     Dosage: UNK
     Dates: start: 20100727, end: 20100728
  5. PREDNISONE [Suspect]
     Indication: INFLAMMATION
     Dosage: UNK
     Route: 030
     Dates: start: 20100727, end: 20100727
  6. TOPAMAX [Concomitant]
     Dosage: 15 MG, UNK
     Dates: start: 20010101
  7. LAMICTAL [Concomitant]
     Dosage: UNK
     Dates: start: 20040101
  8. WELLBATRIN [Concomitant]
     Dosage: 500 MG, UNK
     Dates: start: 19990101
  9. BIOTIN [Concomitant]
     Dosage: UNKNOWN DOSE ONCE DAILY
     Dates: start: 20071001
  10. BAPINEUZUMAB [Suspect]
     Indication: DEMENTIA ALZHEIMER'S TYPE
     Dosage: UNK MG/KG, SINGLE
     Route: 042
     Dates: start: 20100318, end: 20100318
  11. GALANTAMINE HYDROBROMIDE [Concomitant]
     Dosage: 24 MG, UNK
     Route: 048
     Dates: start: 20050101
  12. MULTI-VITAMINS [Concomitant]
     Dosage: UNK
     Dates: start: 20060101
  13. PREMPRO [Concomitant]
     Dosage: UNK
     Route: 048
     Dates: start: 19960101
  14. BAPINEUZUMAB [Suspect]
     Dosage: UNK MG/KG, SINGLE
     Route: 042
     Dates: start: 20100909, end: 20100909
  15. BAPINEUZUMAB [Suspect]
     Dosage: UNK MG/KG, SINGLE
     Route: 042
     Dates: start: 20101209, end: 20101209
  16. PREDNISONE [Suspect]
     Indication: ANTIALLERGIC THERAPY
  17. SEROQUEL [Concomitant]
  18. TEMAZEPAM [Concomitant]
     Dosage: 30 MG, UNK
     Route: 048
     Dates: start: 20030101

REACTIONS (1)
  - HALLUCINATIONS, MIXED [None]
